FAERS Safety Report 7235001-1 (Version None)
Quarter: 2011Q1

REPORT INFORMATION
  Report Type: 
  Country: None (occurrence: None)
  Receive Date: 20110120
  Receipt Date: 20110112
  Transmission Date: 20110831
  Serious: Yes (Death)
  Sender: FDA-Public Use
  Company Number: US-BAXTER-2010BH025903

PATIENT
  Age: 27 Year
  Sex: Female

DRUGS (11)
  1. GAMMAGARD LIQUID [Suspect]
     Indication: IMMUNODEFICIENCY COMMON VARIABLE
     Route: 042
     Dates: start: 20100825
  2. NAPROSYN [Concomitant]
     Indication: PREMEDICATION
     Route: 048
  3. PERIACTIN [Concomitant]
     Indication: PREMEDICATION
  4. DEMEROL [Concomitant]
     Indication: PREMEDICATION
     Route: 042
  5. DIPHENHYDRAMINE [Concomitant]
     Indication: PREMEDICATION
     Route: 048
  6. LIDOCAINE HYDROCHLORIDE IN PLASTIC CONTAINER [Concomitant]
     Indication: PREMEDICATION
     Route: 061
  7. GAMMAGARD LIQUID [Suspect]
     Route: 042
     Dates: start: 20100825
  8. DEXTROSE 5% [Concomitant]
     Indication: PREMEDICATION
     Route: 042
  9. GAMMAGARD LIQUID [Suspect]
     Indication: PRIMARY IMMUNODEFICIENCY SYNDROME
     Route: 042
     Dates: start: 20100825
  10. GAMMAGARD LIQUID [Suspect]
     Route: 042
     Dates: start: 20100825
  11. SOLU-CORTEF [Concomitant]
     Indication: PREMEDICATION
     Route: 042

REACTIONS (1)
  - DEATH [None]
